FAERS Safety Report 18961744 (Version 1)
Quarter: 2021Q1

REPORT INFORMATION
  Report Type: Spontaneous
  Country: CA (occurrence: CA)
  Receive Date: 20210302
  Receipt Date: 20210302
  Transmission Date: 20210420
  Serious: Yes (Other)
  Sender: FDA-Public Use
  Company Number: CA-CELLTRION INC.-2020CA033254

PATIENT

DRUGS (4)
  1. INFLECTRA [Suspect]
     Active Substance: INFLIXIMAB-DYYB
     Indication: COLITIS ULCERATIVE
     Dosage: UNK
     Route: 042
     Dates: start: 20201108, end: 20201108
  2. INFLECTRA [Suspect]
     Active Substance: INFLIXIMAB-DYYB
     Dosage: 500 MG WEEK 2, 6 AND THEN EVERY 8 WEEKS
     Route: 042
     Dates: start: 20210219
  3. INFLECTRA [Suspect]
     Active Substance: INFLIXIMAB-DYYB
     Dosage: 500 MG WEEK 2, 6 AND THEN EVERY 8 WEEKS
     Route: 042
     Dates: start: 20201124
  4. INFLECTRA [Suspect]
     Active Substance: INFLIXIMAB-DYYB
     Dosage: 500 MG WEEK 2, 6 AND THEN EVERY 8 WEEKS
     Route: 042
     Dates: start: 20201223

REACTIONS (5)
  - Heart rate decreased [Unknown]
  - Condition aggravated [Unknown]
  - Weight increased [Unknown]
  - Weight decreased [Unknown]
  - Off label use [Unknown]

NARRATIVE: CASE EVENT DATE: 20201124
